FAERS Safety Report 21436952 (Version 1)
Quarter: 2022Q4

REPORT INFORMATION
  Report Type: Spontaneous
  Country: GR (occurrence: GR)
  Receive Date: 20221010
  Receipt Date: 20221010
  Transmission Date: 20230113
  Serious: Yes (Other)
  Sender: FDA-Public Use
  Company Number: GR-PFIZER INC-PV202200076115

PATIENT
  Sex: Female

DRUGS (1)
  1. PAXLOVID [Suspect]
     Active Substance: NIRMATRELVIR\RITONAVIR
     Indication: COVID-19 treatment
     Dosage: 2 TABS OF 150 MG PF-07321332 AND 100 MG RITONAVIR, EVERY 12H

REACTIONS (2)
  - Arrhythmia [Recovered/Resolved]
  - Bradycardia [Recovered/Resolved]
